FAERS Safety Report 19592968 (Version 1)
Quarter: 2021Q3

REPORT INFORMATION
  Report Type: Spontaneous
  Country: US (occurrence: US)
  Receive Date: 20210721
  Receipt Date: 20210721
  Transmission Date: 20211014
  Serious: Yes (Death)
  Sender: FDA-Public Use
  Company Number: None

PATIENT
  Age: 35 Year
  Sex: Male

DRUGS (1)
  1. BOTOX [Suspect]
     Active Substance: ONABOTULINUMTOXINA
     Indication: QUADRIPLEGIA
     Dosage: ?          OTHER FREQUENCY:Q90D;?
     Route: 041
     Dates: start: 20200421

REACTIONS (1)
  - Death [None]

NARRATIVE: CASE EVENT DATE: 20210720
